FAERS Safety Report 5297537-2 (Version None)
Quarter: 2007Q2

REPORT INFORMATION
  Report Type: 
  Country: None (occurrence: None)
  Receive Date: 20070416
  Receipt Date: 20070403
  Transmission Date: 20071010
  Serious: Yes (Hospitalization)
  Sender: FDA-Public Use
  Company Number: PHBS2007ES05887

PATIENT
  Age: 83 Year
  Sex: Male

DRUGS (1)
  1. NITRODERM [Suspect]
     Indication: INFARCTION

REACTIONS (2)
  - BACK PAIN [None]
  - ELECTROCARDIOGRAM ABNORMAL [None]
